FAERS Safety Report 6016973-X (Version None)
Quarter: 2008Q4

REPORT INFORMATION
  Report Type: 
  Country: None (occurrence: None)
  Receive Date: 20081222
  Receipt Date: 20081216
  Transmission Date: 20090506
  Serious: Yes (Life-Threatening)
  Sender: FDA-Public Use
  Company Number: GB-RANBAXY-2008RR-20040

PATIENT
  Age: 85 Year
  Sex: Female
  Weight: 45 kg

DRUGS (3)
  1. CIPROFLOXACIN HCL [Suspect]
  2. INDAPAMIDE [Concomitant]
     Indication: HYPERTENSION
     Dosage: 2.5 MG, UNK
     Route: 048
     Dates: end: 20081124
  3. LERCANIDIPINE [Concomitant]
     Dosage: 10 MG, UNK
     Route: 048
     Dates: end: 20081124

REACTIONS (2)
  - OLIGURIA [None]
  - URINE OUTPUT DECREASED [None]
